FAERS Safety Report 8398049-X (Version None)
Quarter: 2012Q2

REPORT INFORMATION
  Report Type: 
  Country: None (occurrence: None)
  Receive Date: 20120524
  Receipt Date: 20120521
  Transmission Date: 20120825
  Serious: Yes (Hospitalization)
  Sender: FDA-Public Use
  Company Number: 2011SP050841

PATIENT
  Age: 35 Year
  Sex: Female
  Weight: 81.1939 kg

DRUGS (2)
  1. NUVARING [Suspect]
     Indication: CONTRACEPTION
     Dates: start: 20090601, end: 20091112
  2. WARFARIN SODIUM [Suspect]
     Indication: ANTICOAGULANT THERAPY

REACTIONS (23)
  - COAGULOPATHY [None]
  - HYPONATRAEMIA [None]
  - ANAEMIA [None]
  - DEEP VEIN THROMBOSIS [None]
  - ALOPECIA [None]
  - BRONCHITIS [None]
  - PULMONARY EMBOLISM [None]
  - MUSCLE SPASMS [None]
  - PNEUMONIA BACTERIAL [None]
  - HAEMORRHOIDS [None]
  - PLEURISY [None]
  - MENTAL DISORDER [None]
  - HYPERGLYCAEMIA [None]
  - URTICARIA [None]
  - PALPITATIONS [None]
  - INFLUENZA [None]
  - MALAISE [None]
  - SINUSITIS BACTERIAL [None]
  - ROAD TRAFFIC ACCIDENT [None]
  - CHILLS [None]
  - HEADACHE [None]
  - ACNE [None]
  - ANAEMIA VITAMIN B12 DEFICIENCY [None]
